FAERS Safety Report 6243185-7 (Version None)
Quarter: 2009Q2

REPORT INFORMATION
  Report Type: 
  Country: None (occurrence: None)
  Receive Date: 20090624
  Receipt Date: 20090328
  Transmission Date: 20091009
  Serious: Yes (Hospitalization)
  Sender: FDA-Public Use
  Company Number: TR-ELI_LILLY_AND_COMPANY-TR200906002314

PATIENT
  Age: 80 Year
  Sex: Male

DRUGS (7)
  1. HUMALOG MIX 75/25 [Suspect]
     Indication: DIABETES MELLITUS
     Dosage: UNK UNK, 2/D
     Route: 058
     Dates: start: 20090205
  2. HUMALOG MIX 75/25 [Suspect]
     Dosage: 6 U, EACH EVENING
     Route: 058
     Dates: start: 20090205
  3. LANZOPRAZOL [Concomitant]
     Indication: ABDOMINAL DISCOMFORT
     Dosage: UNK, EACH EVENING
     Route: 065
  4. DEBRIDAT [Concomitant]
     Indication: GASTROINTESTINAL DISORDER
     Dosage: UNK, 2/D
     Route: 065
  5. FINASTERIDE [Concomitant]
     Dosage: UNK, DAILY (1/D)
     Route: 065
  6. ALPRAZOLAM [Concomitant]
     Indication: SLEEP DISORDER
     Dosage: UNK, DAILY (1/D)
     Route: 065
  7. FERROGLYCINE SULFATE COMPLEX [Concomitant]
     Indication: MINERAL SUPPLEMENTATION
     Dosage: UNK, DAILY (1/D)
     Route: 065

REACTIONS (2)
  - INJECTION SITE HAEMATOMA [None]
  - TRANSFUSION [None]
